FAERS Safety Report 6398976-9 (Version None)
Quarter: 2009Q4

REPORT INFORMATION
  Report Type: 
  Country: None (occurrence: None)
  Receive Date: 20091013
  Receipt Date: 20091001
  Transmission Date: 20100525
  Serious: Yes (Other)
  Sender: FDA-Public Use
  Company Number: US-BAYER-200935164NA

PATIENT
  Age: 48 Year
  Sex: Female

DRUGS (1)
  1. EOVIST [Suspect]
     Indication: NUCLEAR MAGNETIC RESONANCE IMAGING
     Dosage: AS USED: 10 ML
     Route: 042
     Dates: start: 20090930, end: 20090930

REACTIONS (6)
  - CHEST DISCOMFORT [None]
  - DYSPNOEA [None]
  - LIP OEDEMA [None]
  - PERIORBITAL OEDEMA [None]
  - RESPIRATORY TRACT CONGESTION [None]
  - URTICARIA [None]
